FAERS Safety Report 5764279-6 (Version None)
Quarter: 2008Q2

REPORT INFORMATION
  Report Type: 
  Country: None (occurrence: None)
  Receive Date: 20080604
  Receipt Date: 20080521
  Transmission Date: 20081010
  Serious: Yes (Hospitalization)
  Sender: FDA-Public Use
  Company Number: 2008AL005654

PATIENT
  Sex: Female

DRUGS (2)
  1. DIGOXIN [Suspect]
     Dosage: 0.25MG
  2. COUMADIN [Concomitant]

REACTIONS (2)
  - ATRIAL FIBRILLATION [None]
  - OVERDOSE [None]
